FAERS Safety Report 8812529 (Version 1)
Quarter: 2012Q4

REPORT INFORMATION
  Report Type: 
  Country: DE (occurrence: DE)
  Receive Date: 20120927
  Receipt Date: 20120927
  Transmission Date: 20130627
  Serious: Yes (Other)
  Sender: FDA-Public Use
  Company Number: DE-SANOFI-AVENTIS-2012SA069327

PATIENT
  Age: 74 Year
  Sex: Male

DRUGS (11)
  1. DOCETAXEL [Suspect]
     Indication: CANCER OF PROSTATE
     Dosage: infusion 48 mg in 250 ml saline
     Route: 042
  2. DOCETAXEL [Suspect]
     Indication: BONE METASTASES
     Dosage: infusion 48 mg in 250 ml saline
     Route: 042
  3. THERAPEUTIC RADIOPHARMACEUTICALS [Concomitant]
     Indication: CANCER OF PROSTATE
     Dosage: dose: 66.6 Gy
     Route: 062
  4. THERAPEUTIC RADIOPHARMACEUTICALS [Concomitant]
     Indication: BONE METASTASES
     Dosage: dose: 66.6 Gy
     Route: 062
  5. BICALUTAMIDE [Concomitant]
     Indication: CANCER OF PROSTATE
  6. BICALUTAMIDE [Concomitant]
     Indication: BONE METASTASES
  7. LEUPRORELIN ACETATE [Concomitant]
     Indication: CANCER OF PROSTATE
  8. LEUPRORELIN ACETATE [Concomitant]
     Indication: BONE METASTASES
  9. BUSERELIN ACETATE [Concomitant]
     Indication: CANCER OF PROSTATE
  10. BUSERELIN ACETATE [Concomitant]
     Indication: BONE METASTASES
  11. SALINE [Concomitant]

REACTIONS (7)
  - Infusion site extravasation [Unknown]
  - Injection site inflammation [Recovered/Resolved]
  - Erythema [Recovered/Resolved]
  - Oedema [Recovered/Resolved]
  - Fat necrosis [Recovered/Resolved]
  - Skin hyperpigmentation [Unknown]
  - Dysaesthesia [Unknown]
